FAERS Safety Report 6811823-3 (Version None)
Quarter: 2010Q3

REPORT INFORMATION
  Report Type: 
  Country: None (occurrence: None)
  Receive Date: 20100701
  Receipt Date: 20100622
  Transmission Date: 20110219
  Serious: No
  Sender: FDA-Public Use
  Company Number: NL-ASTRAZENECA-2010SE29550

PATIENT
  Age: 7152 Day
  Sex: Male
  Weight: 94 kg

DRUGS (1)
  1. SEROQUEL [Suspect]
     Indication: SCHIZOPHRENIA
     Route: 048
     Dates: start: 20070404, end: 20100404

REACTIONS (4)
  - DISTURBANCE IN ATTENTION [None]
  - EMOTIONAL DISORDER [None]
  - FATIGUE [None]
  - WEIGHT INCREASED [None]
